FAERS Safety Report 7779167-3 (Version None)
Quarter: 2011Q3

REPORT INFORMATION
  Report Type: 
  Country: None (occurrence: None)
  Receive Date: 20110926
  Receipt Date: 20110919
  Transmission Date: 20111222
  Serious: Yes (Hospitalization)
  Sender: FDA-Public Use
  Company Number: PHEH2011US04586

PATIENT
  Sex: Male

DRUGS (1)
  1. TOBI [Suspect]
     Indication: CYSTIC FIBROSIS
     Dosage: 1 DF, BID
     Dates: start: 20110523

REACTIONS (3)
  - LUNG INFECTION [None]
  - PNEUMONIA [None]
  - STAPHYLOCOCCAL INFECTION [None]
